FAERS Safety Report 22267431 (Version 1)
Quarter: 2023Q2

REPORT INFORMATION
  Report Type: Other
  Country: None (occurrence: IE)
  Receive Date: 20230429
  Receipt Date: 20230429
  Transmission Date: 20230722
  Serious: Yes (Life-Threatening, Hospitalization, Other)
  Sender: FDA-Public Use
  Company Number: IE-Zhejiang Jingxin Pharmaceutical Co., Ltd-2140937

PATIENT
  Sex: Female

DRUGS (6)
  1. LEVETIRACETAM [Suspect]
     Active Substance: LEVETIRACETAM
     Indication: Epilepsy
     Route: 065
  2. PHENOBARBITAL [Suspect]
     Active Substance: PHENOBARBITAL
     Route: 065
  3. LORAZEPAM [Suspect]
     Active Substance: LORAZEPAM
     Route: 065
  4. FENTANYL [Concomitant]
     Active Substance: FENTANYL
     Route: 065
  5. ATROPINE [Concomitant]
     Active Substance: ATROPINE
     Route: 065
  6. SUCCINYLCHOLINE CHLORIDE [Concomitant]
     Active Substance: SUCCINYLCHOLINE CHLORIDE
     Route: 065

REACTIONS (3)
  - Respiratory failure [Unknown]
  - Apnoea [Unknown]
  - Drug ineffective [Unknown]
